FAERS Safety Report 6907061-6 (Version None)
Quarter: 2010Q3

REPORT INFORMATION
  Report Type: 
  Country: None (occurrence: None)
  Receive Date: 20100804
  Receipt Date: 20080804
  Transmission Date: 20110219
  Serious: Yes (Hospitalization)
  Sender: FDA-Public Use
  Company Number: AU-PFIZER INC-2008034201

PATIENT
  Sex: Male

DRUGS (12)
  1. MARAVIROC [Suspect]
     Indication: HIV INFECTION
     Route: 048
     Dates: start: 20050202
  2. ASPIRINE [Concomitant]
     Route: 048
     Dates: start: 20070712
  3. PRAVASTATIN [Concomitant]
     Route: 048
     Dates: start: 20080325
  4. RABEPRAZOLE SODIUM [Concomitant]
     Route: 048
     Dates: start: 20041101
  5. FAMCICLOVIR [Concomitant]
     Route: 048
     Dates: start: 20041228
  6. CLOPIDOGREL [Concomitant]
     Route: 048
     Dates: start: 20071101
  7. TRITACE [Concomitant]
     Route: 048
     Dates: start: 20080115
  8. MIRTAZAPINE [Concomitant]
     Route: 048
     Dates: start: 20060721
  9. RITONAVIR [Concomitant]
     Route: 048
     Dates: start: 20070307
  10. TRUVADA [Concomitant]
     Route: 048
     Dates: start: 20070307
  11. DARUNAVIR [Concomitant]
     Route: 048
     Dates: start: 20070307
  12. ALL OTHER THERAPEUTIC PRODUCTS [Concomitant]
     Route: 048

REACTIONS (1)
  - CHEST PAIN [None]
